FAERS Safety Report 5057144-3 (Version None)
Quarter: 2006Q2

REPORT INFORMATION
  Report Type: 
  Country: None (occurrence: None)
  Receive Date: 20060622
  Receipt Date: 20050919
  Transmission Date: 20061013
  Serious: Yes (Other)
  Sender: FDA-Public Use
  Company Number: US-JNJFOC-20050904800

PATIENT
  Age: 49 Year
  Sex: Female
  Weight: 54.976 kg

DRUGS (6)
  1. DURAGESIC-100 [Suspect]
     Indication: PAIN
     Dosage: 150 UG/HR, 1 IN 72 HOUR, TRANSDERMAL
     Route: 062
  2. LORTAB [Concomitant]
  3. PREMPRO (PROVELLA-14) TABLETS [Concomitant]
  4. KLONOPIN [Concomitant]
  5. PAXIL [Concomitant]
  6. MOBIC [Concomitant]

REACTIONS (4)
  - ARTHROPATHY [None]
  - DRUG ABUSER [None]
  - INCOHERENT [None]
  - URINARY TRACT INFECTION [None]
